FAERS Safety Report 6653174-6 (Version None)
Quarter: 2010Q1

REPORT INFORMATION
  Report Type: 
  Country: None (occurrence: None)
  Receive Date: 20100326
  Receipt Date: 20100318
  Transmission Date: 20100710
  Serious: Yes (Hospitalization)
  Sender: FDA-Public Use
  Company Number: US-ASTRAZENECA-2010SE12069

PATIENT
  Age: 23911 Day
  Sex: Male
  Weight: 79.4 kg

DRUGS (9)
  1. SEROQUEL [Suspect]
     Route: 048
  2. LISINOPRIL [Concomitant]
     Route: 048
  3. PLAVIX [Concomitant]
  4. FLOMAX [Concomitant]
  5. LEVOTHYROXINE SODIUM [Concomitant]
  6. METFORMIN HYDROCHLORIDE [Concomitant]
     Indication: DIABETES MELLITUS
  7. ULTRAM [Concomitant]
     Indication: BACK PAIN
  8. ZOLOFT [Concomitant]
     Indication: DEPRESSION
  9. PREDNIZONE [Concomitant]
     Indication: SLE ARTHRITIS

REACTIONS (2)
  - FALL [None]
  - FEMUR FRACTURE [None]
